FAERS Safety Report 24890746 (Version 4)
Quarter: 2025Q2

REPORT INFORMATION
  Report Type: Report from Study
  Country: US (occurrence: US)
  Receive Date: 20250127
  Receipt Date: 20250423
  Transmission Date: 20250716
  Serious: No
  Sender: SUNOVION
  Company Number: US-SUMITOMO PHARMA SWITZERLAND GMBH-2025SPA000473

PATIENT

DRUGS (2)
  1. ORGOVYX [Suspect]
     Active Substance: RELUGOLIX
     Indication: Prostate cancer
     Route: 048
  2. ORGOVYX [Suspect]
     Active Substance: RELUGOLIX
     Dosage: 120 MG, QD, STARTED WITH BIOLOGICS
     Route: 048
     Dates: start: 20250117

REACTIONS (5)
  - Cold sweat [Unknown]
  - Dysuria [Unknown]
  - Fatigue [Unknown]
  - Hot flush [Recovering/Resolving]
  - Asthenia [Unknown]
